FAERS Safety Report 5534052-2 (Version None)
Quarter: 2007Q4

REPORT INFORMATION
  Report Type: 
  Country: None (occurrence: None)
  Receive Date: 20071129
  Receipt Date: 20071129
  Transmission Date: 20080405
  Serious: Yes (Other)
  Sender: FDA-Public Use
  Company Number: None

PATIENT
  Age: 30 Year
  Sex: Female
  Weight: 58.9676 kg

DRUGS (1)
  1. CYMBALTA [Suspect]
     Indication: ANXIETY
     Dosage: 60MG 1X DAILY PO
     Route: 048
     Dates: start: 20070701, end: 20071124

REACTIONS (10)
  - ANORGASMIA [None]
  - CRYING [None]
  - DIZZINESS [None]
  - EMOTIONAL DISORDER [None]
  - INAPPROPRIATE AFFECT [None]
  - MEMORY IMPAIRMENT [None]
  - NAUSEA [None]
  - VISUAL ACUITY REDUCED [None]
  - WEIGHT INCREASED [None]
  - WITHDRAWAL SYNDROME [None]
